FAERS Safety Report 7636458-4 (Version None)
Quarter: 2011Q3

REPORT INFORMATION
  Report Type: 
  Country: None (occurrence: None)
  Receive Date: 20110719
  Receipt Date: 20110705
  Transmission Date: 20111222
  Serious: Yes (Other)
  Sender: FDA-Public Use
  Company Number: MC201100303

PATIENT
  Age: 85 Year
  Sex: Male

DRUGS (9)
  1. NITROGLYCERIN [Concomitant]
  2. ATORVASTATIN CALCIUM [Concomitant]
  3. FUROSEMIDE [Concomitant]
  4. ATENOLOL [Concomitant]
  5. METFORMIN (METFORMIN HYDROCHLORIDE) [Concomitant]
  6. CLOPIDOGREL [Concomitant]
  7. ANGIOMAX [Suspect]
     Indication: OFF LABEL USE
     Dosage: 0.75 MG/KG, BOLUS, INTRAVENOUS ; 1.75 MG/KG, HR, INTRAVENOUS
     Route: 042
  8. ANGIOMAX [Suspect]
     Indication: ACUTE CORONARY SYNDROME
     Dosage: 0.75 MG/KG, BOLUS, INTRAVENOUS ; 1.75 MG/KG, HR, INTRAVENOUS
     Route: 042
  9. ASPIRIN [Concomitant]

REACTIONS (4)
  - ACUTE MYOCARDIAL INFARCTION [None]
  - CORONARY ARTERY EMBOLISM [None]
  - VASCULAR GRAFT OCCLUSION [None]
  - CORONARY NO-REFLOW PHENOMENON [None]
